FAERS Safety Report 20661407 (Version 2)
Quarter: 2022Q2

REPORT INFORMATION
  Report Type: Spontaneous
  Country: US (occurrence: None)
  Receive Date: 20220401
  Receipt Date: 20220421
  Transmission Date: 20220721
  Serious: Yes (Hospitalization, Other)
  Sender: FDA-Public Use
  Company Number: US-Hikma Pharmaceuticals USA Inc.-US-H14001-22-00930

PATIENT
  Age: 29 Year
  Sex: Female

DRUGS (4)
  1. DOXYCYCLINE [Suspect]
     Active Substance: DOXYCYCLINE
     Indication: Lymphadenopathy
     Dosage: UNKNOWN
     Route: 065
     Dates: start: 2017, end: 2017
  2. DOXYCYCLINE [Suspect]
     Active Substance: DOXYCYCLINE
     Indication: Pyrexia
     Dosage: UNKNOWN
     Route: 065
     Dates: start: 2020
  3. DOXYCYCLINE [Suspect]
     Active Substance: DOXYCYCLINE
     Indication: Dermatitis
  4. IBUPROFEN [Concomitant]
     Active Substance: IBUPROFEN
     Indication: Migraine
     Dosage: UNKNOWN
     Route: 065

REACTIONS (7)
  - Febrile neutropenia [Recovered/Resolved]
  - Rash [Recovered/Resolved]
  - Pharyngitis bacterial [Recovered/Resolved]
  - Lymphadenopathy [Recovered/Resolved]
  - Beta haemolytic streptococcal infection [Recovered/Resolved]
  - Aphthous ulcer [Recovered/Resolved]
  - Leukopenia [Recovered/Resolved]

NARRATIVE: CASE EVENT DATE: 20170101
